FAERS Safety Report 8986258 (Version 1)
Quarter: 2012Q4

REPORT INFORMATION
  Report Type: Spontaneous
  Country: JP (occurrence: None)
  Receive Date: 20121217
  Receipt Date: 20121217
  Transmission Date: 20130627
  Serious: Yes (Other)
  Sender: FDA-Public Use
  Company Number: 2012VX005365

PATIENT
  Age: 71 Year
  Sex: Male

DRUGS (2)
  1. VISUDYNE [Suspect]
     Indication: POLYPOIDAL CHOROIDAL VASCULOPATHY
  2. RANIBIZUMAB [Suspect]
     Indication: POLYPOIDAL CHOROIDAL VASCULOPATHY

REACTIONS (5)
  - Retinal haemorrhage [None]
  - Visual acuity reduced [None]
  - Drug effect decreased [None]
  - Disease recurrence [None]
  - Polypoidal choroidal vasculopathy [None]
